FAERS Safety Report 24582991 (Version 3)
Quarter: 2025Q1

REPORT INFORMATION
  Report Type: Spontaneous
  Country: US (occurrence: US)
  Receive Date: 20241106
  Receipt Date: 20250324
  Transmission Date: 20250408
  Serious: No
  Sender: UCB
  Company Number: US-UCBSA-2024027616

PATIENT
  Sex: Female

DRUGS (12)
  1. BRIVIACT [Suspect]
     Active Substance: BRIVARACETAM
     Indication: Lennox-Gastaut syndrome
  2. BRIVIACT [Suspect]
     Active Substance: BRIVARACETAM
     Indication: Off label use
  3. LEVETIRACETAM [Suspect]
     Active Substance: LEVETIRACETAM
     Indication: Lennox-Gastaut syndrome
  4. LEVETIRACETAM [Suspect]
     Active Substance: LEVETIRACETAM
     Indication: Off label use
  5. VIMPAT [Suspect]
     Active Substance: LACOSAMIDE
     Indication: Lennox-Gastaut syndrome
  6. VIMPAT [Suspect]
     Active Substance: LACOSAMIDE
     Indication: Off label use
  7. DEPAKOTE [Suspect]
     Active Substance: DIVALPROEX SODIUM
     Indication: Lennox-Gastaut syndrome
  8. ONFI [Suspect]
     Active Substance: CLOBAZAM
     Indication: Lennox-Gastaut syndrome
  9. PERAMPANEL [Suspect]
     Active Substance: PERAMPANEL
     Indication: Lennox-Gastaut syndrome
  10. RUFINAMIDE [Suspect]
     Active Substance: RUFINAMIDE
     Indication: Lennox-Gastaut syndrome
  11. TOPAMAX [Suspect]
     Active Substance: TOPIRAMATE
     Indication: Lennox-Gastaut syndrome
  12. ZONISAMIDE [Suspect]
     Active Substance: ZONISAMIDE
     Indication: Lennox-Gastaut syndrome

REACTIONS (2)
  - Multiple-drug resistance [Unknown]
  - Off label use [Unknown]
